FAERS Safety Report 6021004-1 (Version None)
Quarter: 2008Q4

REPORT INFORMATION
  Report Type: 
  Country: None (occurrence: None)
  Receive Date: 20081229
  Receipt Date: 20081219
  Transmission Date: 20090506
  Serious: No
  Sender: FDA-Public Use
  Company Number: US-BAYER-200841303NA

PATIENT
  Age: 24 Year
  Sex: Female
  Weight: 57 kg

DRUGS (4)
  1. MIRENA [Suspect]
     Indication: CONTRACEPTION
     Route: 015
     Dates: start: 20071201, end: 20081217
  2. LIBRAX [Concomitant]
  3. ZYRTEC [Concomitant]
  4. IMODIUM [Concomitant]

REACTIONS (5)
  - ABDOMINAL PAIN [None]
  - ASCITES [None]
  - ENDOMETRIAL HYPERTROPHY [None]
  - OVARIAN CYST RUPTURED [None]
  - VAGINAL HAEMORRHAGE [None]
